FAERS Safety Report 5798690-4 (Version None)
Quarter: 2008Q2

REPORT INFORMATION
  Report Type: 
  Country: None (occurrence: None)
  Receive Date: 20080630
  Receipt Date: 20080624
  Transmission Date: 20081010
  Serious: Yes (Death, Hospitalization)
  Sender: FDA-Public Use
  Company Number: 2008-02327

PATIENT
  Sex: Male

DRUGS (3)
  1. VELCADE [Suspect]
     Indication: MULTIPLE MYELOMA
     Dosage: 3.5 MG, INTRAVENOUS
     Route: 042
     Dates: start: 20080501
  2. DEXAMETHASONE [Concomitant]
  3. THALIDOMIDE [Concomitant]

REACTIONS (2)
  - CENTRAL NERVOUS SYSTEM INFECTION [None]
  - PYREXIA [None]
